FAERS Safety Report 8321438-6 (Version None)
Quarter: 2012Q2

REPORT INFORMATION
  Report Type: 
  Country: None (occurrence: None)
  Receive Date: 20120430
  Receipt Date: 20091218
  Transmission Date: 20120825
  Serious: No
  Sender: FDA-Public Use
  Company Number: US-TEVA-2009011093

PATIENT
  Age: 65 Year
  Sex: Male
  Weight: 90.8 kg

DRUGS (4)
  1. PROVIGIL [Concomitant]
     Route: 048
     Dates: start: 20090901
  2. NUVIGIL [Suspect]
     Dosage: 150 MILLIGRAM;
     Route: 048
     Dates: start: 20090801, end: 20090901
  3. PROVIGIL [Concomitant]
     Dosage: 200 MILLIGRAM;
     Route: 048
     Dates: end: 20090801
  4. HYDROCHLOROTHIAZIDE [Concomitant]

REACTIONS (2)
  - EUPHORIC MOOD [None]
  - BLOOD PRESSURE INCREASED [None]
